FAERS Safety Report 8076302-7 (Version None)
Quarter: 2012Q1

REPORT INFORMATION
  Report Type: 
  Country: None (occurrence: None)
  Receive Date: 20120127
  Receipt Date: 20120117
  Transmission Date: 20120608
  Serious: Yes (Hospitalization)
  Sender: FDA-Public Use
  Company Number: US-ROCHE-1008923

PATIENT
  Age: 44 Year
  Sex: Female
  Weight: 74.3 kg

DRUGS (3)
  1. CISPLATIN [Suspect]
     Indication: CERVIX CARCINOMA
     Dosage: ON DAY 1
     Route: 042
     Dates: start: 20110601
  2. PACLITAXEL [Suspect]
     Indication: CERVIX CARCINOMA
     Dosage: OVER 3 HRS ON DAY 1
     Route: 042
     Dates: start: 20110601
  3. AVASTIN [Suspect]
     Indication: CERVIX CARCINOMA
     Dosage: OVER 30-90 MIN ON DAY ONE
     Route: 042
     Dates: start: 20110601

REACTIONS (2)
  - HYDRONEPHROSIS [None]
  - VAGINAL FISTULA [None]
